FAERS Safety Report 21918581 (Version 1)
Quarter: 2023Q1

REPORT INFORMATION
  Report Type: Spontaneous
  Country: GB (occurrence: GB)
  Receive Date: 20230127
  Receipt Date: 20230127
  Transmission Date: 20230418
  Serious: Yes (Death, Other)
  Sender: FDA-Public Use
  Company Number: GB-AMGEN-GBRSP2023011667

PATIENT

DRUGS (2)
  1. REPATHA [Suspect]
     Active Substance: EVOLOCUMAB
     Indication: Low density lipoprotein increased
     Dosage: 140 MILLIGRAM, Q2WK, UNTIL DAY 360
     Route: 058
  2. REPATHA [Suspect]
     Active Substance: EVOLOCUMAB
     Indication: Cardiovascular disorder

REACTIONS (57)
  - COVID-19 [Fatal]
  - Cataract [Unknown]
  - Angina pectoris [Unknown]
  - Diabetes mellitus inadequate control [Unknown]
  - Type 2 diabetes mellitus [Unknown]
  - Diabetes mellitus [Unknown]
  - Adverse event [Unknown]
  - Hepatic enzyme increased [Unknown]
  - Injection site rash [Unknown]
  - Injection site paraesthesia [Unknown]
  - Injection site haematoma [Unknown]
  - Injection site vesicles [Unknown]
  - Injection site warmth [Unknown]
  - Injection site reaction [Unknown]
  - Injection site haemorrhage [Unknown]
  - Injection site pain [Unknown]
  - Injection site erythema [Unknown]
  - Injection site bruising [Unknown]
  - Weight decreased [Unknown]
  - Low density lipoprotein increased [Unknown]
  - Migraine with aura [Unknown]
  - Ear infection [Unknown]
  - Ankle fracture [Unknown]
  - Diverticulum [Unknown]
  - Restless legs syndrome [Unknown]
  - Lower respiratory tract infection [Unknown]
  - Cystitis [Unknown]
  - Bronchitis [Unknown]
  - Dyspnoea [Unknown]
  - Pain in extremity [Unknown]
  - Fall [Unknown]
  - Non-cardiac chest pain [Unknown]
  - Constipation [Unknown]
  - Gout [Unknown]
  - Oedema peripheral [Unknown]
  - Dyspnoea exertional [Unknown]
  - Gastrooesophageal reflux disease [Unknown]
  - Wrong dose [Unknown]
  - Osteoarthritis [Unknown]
  - Abdominal pain upper [Unknown]
  - Urinary tract infection [Unknown]
  - Hypertension [Unknown]
  - Dizziness [Unknown]
  - Fatigue [Unknown]
  - Cough [Unknown]
  - Diarrhoea [Unknown]
  - Contusion [Unknown]
  - Muscle spasms [Unknown]
  - Blood glucose increased [Unknown]
  - Nasopharyngitis [Unknown]
  - Myalgia [Unknown]
  - Headache [Unknown]
  - Arthralgia [Unknown]
  - Upper respiratory tract infection [Unknown]
  - Nausea [Unknown]
  - Back pain [Unknown]
  - Influenza [Unknown]
